FAERS Safety Report 8204103-5 (Version None)
Quarter: 2012Q1

REPORT INFORMATION
  Report Type: 
  Country: None (occurrence: None)
  Receive Date: 20120313
  Receipt Date: 20120302
  Transmission Date: 20120608
  Serious: Yes (Hospitalization)
  Sender: FDA-Public Use
  Company Number: US-AMGEN-USASP2012012185

PATIENT
  Age: 61 Year
  Sex: Female

DRUGS (2)
  1. ENBREL [Suspect]
     Indication: PSORIATIC ARTHROPATHY
  2. ENBREL [Suspect]
     Indication: RHEUMATOID ARTHRITIS
     Dosage: 50 MG, 2 TIMES/WK
     Dates: start: 20031201, end: 20111123

REACTIONS (11)
  - OSTEOARTHRITIS [None]
  - VOMITING PROJECTILE [None]
  - TOOTH DISORDER [None]
  - LIGAMENT RUPTURE [None]
  - PNEUMONIA [None]
  - SEPSIS [None]
  - CHEST PAIN [None]
  - WHITE BLOOD CELL COUNT INCREASED [None]
  - PSORIATIC ARTHROPATHY [None]
  - LOSS OF CONSCIOUSNESS [None]
  - WEIGHT BEARING DIFFICULTY [None]
